FAERS Safety Report 6486082-4 (Version None)
Quarter: 2009Q4

REPORT INFORMATION
  Report Type: 
  Country: None (occurrence: None)
  Receive Date: 20091207
  Receipt Date: 20091123
  Transmission Date: 20100525
  Serious: Yes (Death, Hospitalization)
  Sender: FDA-Public Use
  Company Number: 2009AC000453

PATIENT
  Age: 68 Year
  Sex: Male
  Weight: 59.4212 kg

DRUGS (24)
  1. DIGOXIN [Suspect]
     Dosage: 0.25 MG;QD;PO
     Route: 048
  2. DIGOXIN [Suspect]
     Dosage: 0.125 MG; QD; PO
     Route: 048
  3. TYLENOL (CAPLET) [Concomitant]
  4. TYLENOL W/ CODEINE NO. 3 [Concomitant]
  5. NITROGLYCERIN [Concomitant]
  6. HISMANAL [Concomitant]
  7. MOTRIN [Concomitant]
  8. ALDACTONE [Concomitant]
  9. SOTALOL HCL [Concomitant]
  10. PRILOSEC [Concomitant]
  11. CARAFATE [Concomitant]
  12. PREDNISONE [Concomitant]
  13. FERROUS SULFATE TAB [Concomitant]
  14. COZAAR [Concomitant]
  15. NEURONTIN [Concomitant]
  16. LASIX [Concomitant]
  17. VICODIN [Concomitant]
  18. AMIODARONE [Concomitant]
  19. COREG [Concomitant]
  20. COLACE [Concomitant]
  21. FLOMAX [Concomitant]
  22. CEPHALEXIN [Concomitant]
  23. LEVAQUIN [Concomitant]
  24. METRONIDAZOLE [Concomitant]

REACTIONS (38)
  - ANAEMIA [None]
  - ARTERIOSCLEROSIS CORONARY ARTERY [None]
  - ATRIAL FIBRILLATION [None]
  - BLOOD UREA INCREASED [None]
  - CEREBRAL ATROPHY [None]
  - CHEST PAIN [None]
  - COLITIS [None]
  - COUGH [None]
  - DEHYDRATION [None]
  - DIVERTICULUM INTESTINAL [None]
  - DYSPNOEA [None]
  - EAR DISORDER [None]
  - ECONOMIC PROBLEM [None]
  - FALL [None]
  - FLUID OVERLOAD [None]
  - HELICOBACTER INFECTION [None]
  - HYPERGLYCAEMIA [None]
  - HYPERTENSION [None]
  - HYPOKALAEMIA [None]
  - HYPOTENSION [None]
  - LACERATION [None]
  - LEUKOCYTOSIS [None]
  - LOSS OF CONSCIOUSNESS [None]
  - LUNG NEOPLASM [None]
  - OEDEMA PERIPHERAL [None]
  - PAIN [None]
  - PELVIC FRACTURE [None]
  - PYREXIA [None]
  - RECTAL POLYP [None]
  - RESPIRATORY FAILURE [None]
  - SOCIAL PROBLEM [None]
  - STRESS [None]
  - SYNCOPE [None]
  - TACHYCARDIA [None]
  - THERAPEUTIC AGENT TOXICITY [None]
  - THROMBOCYTOPENIA [None]
  - TRAUMATIC BRAIN INJURY [None]
  - UNEVALUABLE EVENT [None]
